FAERS Safety Report 12834725 (Version 3)
Quarter: 2016Q4

REPORT INFORMATION
  Report Type: Spontaneous
  Country: US (occurrence: US)
  Receive Date: 20161010
  Receipt Date: 20161114
  Transmission Date: 20170207
  Serious: No
  Sender: FDA-Public Use
  Company Number: US-PFIZER INC-2016469839

PATIENT
  Age: 31 Year
  Sex: Female

DRUGS (6)
  1. DALTEPARIN SODIUM [Concomitant]
     Active Substance: DALTEPARIN SODIUM
     Indication: PULMONARY EMBOLISM
     Dosage: 10000 IU, 1X/DAY
     Route: 058
     Dates: start: 201510
  2. XALKORI [Suspect]
     Active Substance: CRIZOTINIB
     Indication: LUNG ADENOCARCINOMA
     Dosage: 250 MG, 1X/DAY
     Route: 048
     Dates: start: 20151021, end: 20161012
  3. HEPARIN [Concomitant]
     Active Substance: HEPARIN SODIUM
     Dosage: UNK
  4. LEVOTHYROXINE. [Concomitant]
     Active Substance: LEVOTHYROXINE
     Indication: HYPOTHYROIDISM
     Dosage: 50 UG, 1X/DAY
     Route: 048
     Dates: start: 2013
  5. SERTRALINE [Concomitant]
     Active Substance: SERTRALINE HYDROCHLORIDE
     Indication: ANXIETY
     Dosage: 25 MG, 1X/DAY
     Route: 048
     Dates: start: 2011
  6. BIOTIN [Concomitant]
     Active Substance: BIOTIN
     Indication: ALOPECIA
     Dosage: 5000 UG, 1X/DAY
     Route: 048
     Dates: start: 201609

REACTIONS (9)
  - Gastroenteritis [Unknown]
  - Diarrhoea [Unknown]
  - Contusion [Recovered/Resolved]
  - Nausea [Unknown]
  - Dizziness [Unknown]
  - Pleural effusion [Unknown]
  - Vomiting [Unknown]
  - Alopecia [Unknown]
  - Neoplasm progression [Not Recovered/Not Resolved]

NARRATIVE: CASE EVENT DATE: 2016
